FAERS Safety Report 24871874 (Version 3)
Quarter: 2025Q4

REPORT INFORMATION
  Report Type: Report from Study
  Country: KR (occurrence: KR)
  Receive Date: 20250122
  Receipt Date: 20251231
  Transmission Date: 20260118
  Serious: Yes (Hospitalization, Other)
  Sender: AMGEN
  Company Number: KR-Vifor (International) Inc.-VIT-2024-04460

PATIENT
  Sex: Female
  Weight: 50 kg

DRUGS (3)
  1. AVACOPAN [Suspect]
     Active Substance: AVACOPAN
     Indication: Microscopic polyangiitis
     Dosage: 20,MG,BID
     Route: 048
     Dates: start: 20240510, end: 20240524
  2. AVACOPAN [Suspect]
     Active Substance: AVACOPAN
     Dosage: 30 MG, BID ONGOING
     Route: 048
     Dates: start: 20240525
  3. CYCLOPHOSPHAMIDE [Concomitant]
     Active Substance: CYCLOPHOSPHAMIDE
     Dosage: UNK,UNK,UNK
     Route: 042

REACTIONS (4)
  - Pneumonia [Unknown]
  - Colon cancer [Unknown]
  - Hepatic cancer metastatic [Unknown]
  - Off label use [Unknown]

NARRATIVE: CASE EVENT DATE: 20240510
